FAERS Safety Report 8427879-0 (Version None)
Quarter: 2012Q2

REPORT INFORMATION
  Report Type: 
  Country: None (occurrence: None)
  Receive Date: 20120611
  Receipt Date: 20120530
  Transmission Date: 20120825
  Serious: Yes (Other)
  Sender: FDA-Public Use
  Company Number: US-ROCHE-1047370

PATIENT
  Sex: Female
  Weight: 59.02 kg

DRUGS (2)
  1. ACCUTANE [Suspect]
     Indication: ACNE
     Dates: start: 19880101, end: 19990101
  2. ACCUTANE [Suspect]
     Dates: start: 20010101, end: 20020401

REACTIONS (5)
  - INJURY [None]
  - PROCTITIS [None]
  - IRRITABLE BOWEL SYNDROME [None]
  - DEPRESSION [None]
  - SUICIDAL IDEATION [None]
